FAERS Safety Report 7371506-0 (Version None)
Quarter: 2011Q1

REPORT INFORMATION
  Report Type: 
  Country: None (occurrence: None)
  Receive Date: 20110324
  Receipt Date: 20110315
  Transmission Date: 20110831
  Serious: Yes (Disabling, Other)
  Sender: FDA-Public Use
  Company Number: CA-US-EMD SERONO, INC.-7000695

PATIENT
  Sex: Female

DRUGS (7)
  1. REBIF [Suspect]
     Indication: RELAPSING-REMITTING MULTIPLE SCLEROSIS
     Dates: start: 20100315
  2. VENTALIN [VENTOLIN] [Concomitant]
  3. REBIF [Suspect]
     Dates: start: 20100329
  4. ORTHO TRI-CYCLEN [Concomitant]
  5. VITAMIN D [Concomitant]
  6. CELEXA [Concomitant]
  7. ADVIL LIQUI-GELS [Concomitant]

REACTIONS (14)
  - MULTIPLE SCLEROSIS RELAPSE [None]
  - FEELING OF BODY TEMPERATURE CHANGE [None]
  - MIGRAINE [None]
  - OPTIC ATROPHY [None]
  - PYREXIA [None]
  - HEADACHE [None]
  - VISUAL ACUITY REDUCED [None]
  - INSOMNIA [None]
  - OPTIC NEURITIS [None]
  - SENSATION OF HEAVINESS [None]
  - INJECTION SITE ERYTHEMA [None]
  - INJECTION SITE PAIN [None]
  - FATIGUE [None]
  - NAUSEA [None]
